FAERS Safety Report 24252705 (Version 1)
Quarter: 2024Q3

REPORT INFORMATION
  Report Type: Spontaneous
  Country: US (occurrence: US)
  Receive Date: 20240827
  Receipt Date: 20240827
  Transmission Date: 20241017
  Serious: No
  Sender: AUROBINDO
  Company Number: US-AUROBINDO-AUR-APL-2024-019499

PATIENT
  Age: 57 Year
  Sex: Female
  Weight: 95.25 kg

DRUGS (2)
  1. AZITHROMYCIN [Suspect]
     Active Substance: AZITHROMYCIN
     Indication: Ear infection
     Dosage: UNK, TWO TIMES A DAY
     Route: 048
     Dates: start: 20240328
  2. AZITHROMYCIN [Suspect]
     Active Substance: AZITHROMYCIN
     Indication: Sinusitis
     Dosage: UNK, ONCE A DAY
     Route: 048
     Dates: start: 20240329

REACTIONS (4)
  - Pain [Not Recovered/Not Resolved]
  - Abdominal pain upper [Unknown]
  - Nausea [Unknown]
  - Diarrhoea [Recovering/Resolving]
